FAERS Safety Report 6257124-6 (Version None)
Quarter: 2009Q3

REPORT INFORMATION
  Report Type: 
  Country: None (occurrence: None)
  Receive Date: 20090706
  Receipt Date: 20090630
  Transmission Date: 20100115
  Serious: Yes (Other)
  Sender: FDA-Public Use
  Company Number: B0581963A

PATIENT
  Sex: Female

DRUGS (4)
  1. PAXIL [Suspect]
     Indication: DEPRESSIVE SYMPTOM
     Dosage: 10MG PER DAY
     Route: 048
     Dates: start: 20081219, end: 20081223
  2. PAXIL [Suspect]
     Dosage: 20MG PER DAY
     Route: 048
     Dates: start: 20081224, end: 20090101
  3. PAXIL [Suspect]
     Dosage: 10MG PER DAY
     Route: 048
     Dates: start: 20090102, end: 20090105
  4. WYPAX [Concomitant]
     Indication: ANXIETY
     Dosage: .5MG THREE TIMES PER DAY
     Route: 048

REACTIONS (4)
  - AMNESIA [None]
  - CONVERSION DISORDER [None]
  - HYPOMANIA [None]
  - REGRESSIVE BEHAVIOUR [None]
